FAERS Safety Report 5680369-0 (Version None)
Quarter: 2008Q1

REPORT INFORMATION
  Report Type: 
  Country: None (occurrence: None)
  Receive Date: 20080326
  Receipt Date: 20080321
  Transmission Date: 20080703
  Serious: Yes (Other)
  Sender: FDA-Public Use
  Company Number: JP-AVENTIS-200810817JP

PATIENT
  Age: 68 Year
  Sex: Male

DRUGS (2)
  1. TAXOTERE [Suspect]
     Route: 041
     Dates: start: 20060201
  2. CARBOPLATIN [Concomitant]
     Dosage: DOSE: 3 AUC
     Dates: start: 20060201

REACTIONS (1)
  - NON-HODGKIN'S LYMPHOMA [None]
